APPROVED DRUG PRODUCT: MIDODRINE HYDROCHLORIDE
Active Ingredient: MIDODRINE HYDROCHLORIDE
Strength: 5MG
Dosage Form/Route: TABLET;ORAL
Application: A214734 | Product #002 | TE Code: AB
Applicant: ALEMBIC PHARMACEUTICALS LTD
Approved: Jan 21, 2021 | RLD: No | RS: No | Type: RX